FAERS Safety Report 16544542 (Version 1)
Quarter: 2019Q3

REPORT INFORMATION
  Report Type: Spontaneous
  Country: SA (occurrence: SA)
  Receive Date: 20190709
  Receipt Date: 20190709
  Transmission Date: 20191004
  Serious: Yes (Life-Threatening, Hospitalization, Other)
  Sender: FDA-Public Use
  Company Number: SA-SAOL THERAPEUTICS-2019SAO00258

PATIENT
  Age: 1 Day
  Sex: Male
  Weight: 3.5 kg

DRUGS (1)
  1. RHO D IMMUNE GLOBULIN [Suspect]
     Active Substance: HUMAN RHO(D) IMMUNE GLOBULIN
     Indication: PROPHYLAXIS AGAINST RH ISOIMMUNISATION
     Route: 064

REACTIONS (7)
  - Rhesus incompatibility [Recovered/Resolved]
  - Pulmonary hypertension [Recovered/Resolved]
  - Iron overload [Recovered/Resolved]
  - Anaemia neonatal [Recovered/Resolved]
  - Drug ineffective [Recovered/Resolved]
  - Biliary tract disorder [Recovered/Resolved]
  - Oxygen saturation decreased [Recovered/Resolved]
